FAERS Safety Report 22262339 (Version 1)
Quarter: 2023Q2

REPORT INFORMATION
  Report Type: Other
  Country: None (occurrence: US)
  Receive Date: 20230428
  Receipt Date: 20230428
  Transmission Date: 20230722
  Serious: Yes (Hospitalization, Other)
  Sender: FDA-Public Use
  Company Number: US-Jiangsu Hansoh Pharmaceutical Co., Ltd-2140877

PATIENT
  Age: 60 Year
  Sex: Male

DRUGS (2)
  1. GEMCITABINE [Suspect]
     Active Substance: GEMCITABINE
     Indication: Bile duct adenocarcinoma
  2. CISPLATIN [Suspect]
     Active Substance: CISPLATIN

REACTIONS (1)
  - Atypical haemolytic uraemic syndrome [Recovering/Resolving]
